FAERS Safety Report 12522164 (Version 1)
Quarter: 2016Q3

REPORT INFORMATION
  Report Type: Report from Study
  Country: CA (occurrence: CA)
  Receive Date: 20160701
  Receipt Date: 20160701
  Transmission Date: 20161109
  Serious: Yes (Other)
  Sender: FDA-Public Use
  Company Number: CA-JNJFOC-20160626264

PATIENT
  Age: 61 Year
  Sex: Female
  Weight: 94.9 kg

DRUGS (3)
  1. METHOTREXATE. [Concomitant]
     Active Substance: METHOTREXATE
  2. PARIET [Concomitant]
     Active Substance: RABEPRAZOLE SODIUM
     Route: 065
  3. REMICADE [Suspect]
     Active Substance: INFLIXIMAB
     Indication: CROHN^S DISEASE
     Route: 042
     Dates: start: 20120829

REACTIONS (1)
  - Breast cancer stage IV [Not Recovered/Not Resolved]

NARRATIVE: CASE EVENT DATE: 20160606
